FAERS Safety Report 4308082-2 (Version None)
Quarter: 2004Q1

REPORT INFORMATION
  Report Type: 
  Country: None (occurrence: None)
  Receive Date: 20040301
  Receipt Date: 20030501
  Transmission Date: 20041129
  Serious: No
  Sender: FDA-Public Use
  Company Number: US-BRISTOL-MYERS SQUIBB COMPANY-12260808

PATIENT
  Age: 56 Year
  Sex: Female
  Weight: 100 kg

DRUGS (8)
  1. METFORMIN HCL [Suspect]
     Indication: DIABETES MELLITUS
     Route: 048
  2. GLYBURIDE [Concomitant]
  3. ATIVAN [Concomitant]
  4. ELAVIL [Concomitant]
  5. NEXIUM [Concomitant]
  6. VITAMIN E [Concomitant]
  7. CALCIUM [Concomitant]
  8. DICYCLOMINE [Concomitant]

REACTIONS (4)
  - DIABETES MELLITUS INADEQUATE CONTROL [None]
  - HEADACHE [None]
  - NAUSEA [None]
  - PCO2 DECREASED [None]
